FAERS Safety Report 7842814-1 (Version None)
Quarter: 2011Q4

REPORT INFORMATION
  Report Type: 
  Country: None (occurrence: None)
  Receive Date: 20111025
  Receipt Date: 20111020
  Transmission Date: 20120403
  Serious: Yes (Other)
  Sender: FDA-Public Use
  Company Number: US-PFIZER INC-2011254275

PATIENT
  Sex: Male
  Weight: 104.31 kg

DRUGS (2)
  1. PREDNISONE [Concomitant]
     Dosage: UNK
  2. LYRICA [Suspect]
     Indication: FIBROMYALGIA
     Dosage: UNK
     Route: 048
     Dates: end: 20080101

REACTIONS (7)
  - CONFUSIONAL STATE [None]
  - DYSSTASIA [None]
  - PAIN [None]
  - PERSONALITY CHANGE [None]
  - ACTIVITIES OF DAILY LIVING IMPAIRED [None]
  - DISSOCIATION [None]
  - FEELING ABNORMAL [None]
